FAERS Safety Report 11106302 (Version 1)
Quarter: 2015Q2

REPORT INFORMATION
  Report Type: Spontaneous
  Country: US (occurrence: None)
  Receive Date: 20150511
  Receipt Date: 20150511
  Transmission Date: 20150821
  Serious: No
  Sender: FDA-Public Use
  Company Number: None

PATIENT
  Age: 32 Year
  Sex: Female

DRUGS (1)
  1. COPAXONE [Suspect]
     Active Substance: GLATIRAMER ACETATE

REACTIONS (3)
  - Hypersensitivity [None]
  - Sinus congestion [None]
  - Oropharyngeal pain [None]

NARRATIVE: CASE EVENT DATE: 20150508
